FAERS Safety Report 6924673-4 (Version None)
Quarter: 2010Q3

REPORT INFORMATION
  Report Type: 
  Country: None (occurrence: None)
  Receive Date: 20100816
  Receipt Date: 20100812
  Transmission Date: 20110219
  Serious: Yes (Hospitalization)
  Sender: FDA-Public Use
  Company Number: US-BIOGENIDEC-2010BI024558

PATIENT
  Age: 40 Year
  Sex: Female

DRUGS (1)
  1. TYSABRI [Suspect]
     Indication: MULTIPLE SCLEROSIS
     Route: 042
     Dates: start: 20100521, end: 20100521

REACTIONS (6)
  - DIARRHOEA [None]
  - GASTROINTESTINAL PAIN [None]
  - HYPOTENSION [None]
  - MIGRAINE [None]
  - SUBSTANCE ABUSE [None]
  - WEIGHT DECREASED [None]
